FAERS Safety Report 14147734 (Version 1)
Quarter: 2017Q4

REPORT INFORMATION
  Report Type: Report from Study
  Country: MX (occurrence: MX)
  Receive Date: 20171031
  Receipt Date: 20171031
  Transmission Date: 20180321
  Serious: Yes (Other)
  Sender: FDA-Public Use
  Company Number: PHHY2017MX159360

PATIENT
  Sex: Male

DRUGS (3)
  1. ENTRESTO [Suspect]
     Active Substance: SACUBITRIL\VALSARTAN
     Indication: LUNG DISORDER
  2. PENICILLIN [Concomitant]
     Active Substance: PENICILLIN
     Indication: PRODUCT USED FOR UNKNOWN INDICATION
     Route: 042
  3. ENTRESTO [Suspect]
     Active Substance: SACUBITRIL\VALSARTAN
     Indication: CARDIAC DISORDER
     Dosage: 50 MG (24MG OF SACUBITRIL AND 26MG OF VALSARTAN), UNK
     Route: 065

REACTIONS (8)
  - Abdominal infection [Unknown]
  - Product use in unapproved indication [Not Recovered/Not Resolved]
  - Cough [Recovering/Resolving]
  - Cardiomegaly [Unknown]
  - Fatigue [Unknown]
  - Gait disturbance [Unknown]
  - Malaise [Not Recovered/Not Resolved]
  - Swelling [Unknown]
